FAERS Safety Report 16654129 (Version 3)
Quarter: 2020Q3

REPORT INFORMATION
  Report Type: Spontaneous
  Country: US (occurrence: US)
  Receive Date: 20190731
  Receipt Date: 20200715
  Transmission Date: 20201102
  Serious: Yes (Hospitalization)
  Sender: FDA-Public Use
  Company Number: US-SA-2019SA202135

PATIENT

DRUGS (1)
  1. AUBAGIO [Suspect]
     Active Substance: TERIFLUNOMIDE
     Indication: MULTIPLE SCLEROSIS
     Dosage: 7 MG, QD
     Route: 048
     Dates: start: 20190417

REACTIONS (4)
  - Condition aggravated [Recovering/Resolving]
  - Headache [Not Recovered/Not Resolved]
  - Pain in jaw [Recovering/Resolving]
  - Pleural effusion [Recovered/Resolved]
